FAERS Safety Report 25249321 (Version 1)
Quarter: 2025Q2

REPORT INFORMATION
  Report Type: Spontaneous
  Country: US (occurrence: US)
  Receive Date: 20250429
  Receipt Date: 20250429
  Transmission Date: 20250717
  Serious: Yes (Other)
  Sender: SANDOZ
  Company Number: US-SANDOZ-SDZ2025US026370

PATIENT
  Age: 71 Year
  Sex: Male

DRUGS (6)
  1. CEFOXITIN [Suspect]
     Active Substance: CEFOXITIN SODIUM
     Indication: Mycobacterium abscessus infection
     Route: 065
  2. CEFOXITIN [Suspect]
     Active Substance: CEFOXITIN SODIUM
     Indication: Abdominal abscess
  3. LINEZOLID [Suspect]
     Active Substance: LINEZOLID
     Indication: Mycobacterium abscessus infection
     Route: 065
  4. LINEZOLID [Suspect]
     Active Substance: LINEZOLID
     Indication: Abdominal abscess
  5. TIGECYCLINE [Suspect]
     Active Substance: TIGECYCLINE
     Indication: Mycobacterium abscessus infection
     Route: 065
  6. TIGECYCLINE [Suspect]
     Active Substance: TIGECYCLINE
     Indication: Abdominal abscess

REACTIONS (3)
  - Gastrointestinal disorder [Unknown]
  - Diarrhoea [Unknown]
  - Drug intolerance [Unknown]
